FAERS Safety Report 18179888 (Version 9)
Quarter: 2021Q3

REPORT INFORMATION
  Report Type: Other
  Country: US (occurrence: US)
  Receive Date: 20200821
  Receipt Date: 20210708
  Transmission Date: 20211014
  Serious: Yes (Hospitalization, Other)
  Sender: FDA-Public Use
  Company Number: US-ROCHE-2661446

PATIENT
  Age: 57 Year
  Sex: Female
  Weight: 100.79 kg

DRUGS (19)
  1. HYDROCORT [Concomitant]
     Indication: ADDISON^S DISEASE
     Dosage: 2 TABLETS AM, 1 IN AFTERNOON AND 1 PM TOTAL 40 MG
     Route: 048
     Dates: start: 201510
  2. LASIX [Concomitant]
     Active Substance: FUROSEMIDE
     Indication: OEDEMA
     Dosage: TAKES PRN
     Dates: start: 202006
  3. XOLAIR [Suspect]
     Active Substance: OMALIZUMAB
     Dosage: 1 SHOT EACH ARM EACH TIME
     Route: 058
     Dates: start: 201610
  4. OXYGEN. [Concomitant]
     Active Substance: OXYGEN
     Indication: OXYGEN SATURATION DECREASED
     Route: 045
     Dates: start: 202004
  5. XOLAIR [Suspect]
     Active Substance: OMALIZUMAB
     Indication: ASTHMA
     Route: 058
     Dates: start: 20190823
  6. METFORMIN ER [Concomitant]
     Active Substance: METFORMIN HYDROCHLORIDE
     Indication: TYPE 2 DIABETES MELLITUS
     Route: 048
  7. CYCLOBENZAPRINE. [Concomitant]
     Active Substance: CYCLOBENZAPRINE
     Route: 048
     Dates: start: 202007
  8. IBUPROFEN. [Concomitant]
     Active Substance: IBUPROFEN
     Indication: ARTHRALGIA
     Dosage: TAKES PRN
     Route: 048
  9. XOLAIR [Suspect]
     Active Substance: OMALIZUMAB
     Route: 058
  10. POTASSIUM CHLORIDE ER [Concomitant]
     Active Substance: POTASSIUM CHLORIDE
     Route: 048
     Dates: start: 202008
  11. EPIPEN [Concomitant]
     Active Substance: EPINEPHRINE
  12. LEVOTHYROXINE. [Concomitant]
     Active Substance: LEVOTHYROXINE
     Indication: AUTOIMMUNE THYROIDITIS
     Route: 048
  13. CARTIA XT [Concomitant]
     Active Substance: DILTIAZEM HYDROCHLORIDE
     Dosage: 240/24 HOUR
     Route: 048
     Dates: start: 202102
  14. VITAMIN D2 [Concomitant]
     Active Substance: ERGOCALCIFEROL
     Route: 048
  15. XOLAIR [Suspect]
     Active Substance: OMALIZUMAB
     Indication: IDIOPATHIC URTICARIA
     Route: 058
     Dates: start: 20190520
  16. XOLAIR [Suspect]
     Active Substance: OMALIZUMAB
     Indication: ASTHMA
     Route: 058
     Dates: start: 20190606
  17. HYDROCORT [Concomitant]
     Indication: ADRENAL INSUFFICIENCY
  18. PERCOCET [Concomitant]
     Active Substance: ACETAMINOPHEN\OXYCODONE HYDROCHLORIDE
     Indication: PAIN
     Dosage: 325/5, CAN TAKE UP TO 4 A DAY
  19. LORAZEPAM. [Concomitant]
     Active Substance: LORAZEPAM
     Indication: ANXIETY
     Dosage: IF USES THIS MUST REDUCE PERCOCET DOSE
     Route: 048

REACTIONS (22)
  - Peripheral swelling [Not Recovered/Not Resolved]
  - Foot fracture [Unknown]
  - Dry mouth [Unknown]
  - Gait inability [Recovering/Resolving]
  - Lung disorder [Unknown]
  - Pruritus [Unknown]
  - Blood potassium decreased [Not Recovered/Not Resolved]
  - Blood iron decreased [Not Recovered/Not Resolved]
  - Paraesthesia [Not Recovered/Not Resolved]
  - Off label use [Unknown]
  - Cardiac arrest [Recovered/Resolved]
  - Migraine [Recovering/Resolving]
  - Hypertension [Not Recovered/Not Resolved]
  - Pharyngitis streptococcal [Not Recovered/Not Resolved]
  - Fatigue [Unknown]
  - COVID-19 [Recovered/Resolved]
  - Peripheral sensory neuropathy [Not Recovered/Not Resolved]
  - Finger amputation [Unknown]
  - Back pain [Not Recovered/Not Resolved]
  - Monoparesis [Recovering/Resolving]
  - Pain in extremity [Not Recovered/Not Resolved]
  - Feeling abnormal [Not Recovered/Not Resolved]

NARRATIVE: CASE EVENT DATE: 202001
